APPROVED DRUG PRODUCT: CARDENE IN 0.86% SODIUM CHLORIDE IN PLASTIC CONTAINER
Active Ingredient: NICARDIPINE HYDROCHLORIDE
Strength: 20MG/200ML (0.1MG/ML)
Dosage Form/Route: INJECTABLE;INTRAVENOUS
Application: N019734 | Product #003 | TE Code: AP
Applicant: CHIESI USA INC
Approved: Jul 31, 2008 | RLD: Yes | RS: Yes | Type: RX

PATENTS:
Patent 7659291 | Expires: Apr 18, 2027
Patent 8455524 | Expires: Apr 18, 2027
Patent 11547758 | Expires: Apr 18, 2027
Patent 9364564 | Expires: Dec 26, 2027
Patent 7612102 | Expires: Dec 26, 2027
Patent 10758616 | Expires: Apr 18, 2027